FAERS Safety Report 7717342-4 (Version None)
Quarter: 2011Q3

REPORT INFORMATION
  Report Type: 
  Country: None (occurrence: None)
  Receive Date: 20110830
  Receipt Date: 20110825
  Transmission Date: 20111222
  Serious: Yes (Other)
  Sender: FDA-Public Use
  Company Number: CA-ABBOTT-11P-028-0849581-00

PATIENT
  Sex: Female
  Weight: 56.75 kg

DRUGS (3)
  1. CORTISONE ACETATE [Concomitant]
     Indication: CROHN'S DISEASE
     Route: 048
     Dates: start: 20100501, end: 20101226
  2. VENTOLIN HFA [Concomitant]
     Indication: ASTHMA
     Route: 055
     Dates: start: 20010101
  3. HUMIRA [Suspect]
     Indication: CROHN'S DISEASE
     Route: 058
     Dates: start: 20100901, end: 20101215

REACTIONS (1)
  - INTESTINAL OBSTRUCTION [None]
